FAERS Safety Report 7156672-4 (Version None)
Quarter: 2010Q4

REPORT INFORMATION
  Report Type: 
  Country: None (occurrence: None)
  Receive Date: 20101214
  Receipt Date: 20091124
  Transmission Date: 20110411
  Serious: No
  Sender: FDA-Public Use
  Company Number: US-ASTRAZENECA-2009SE28633

PATIENT
  Age: 77 Year
  Sex: Female
  Weight: 59 kg

DRUGS (3)
  1. CRESTOR [Suspect]
     Route: 048
  2. CRESTOR [Suspect]
     Route: 048
  3. SYNTHROID [Concomitant]
     Indication: THYROID DISORDER

REACTIONS (2)
  - FATIGUE [None]
  - INCREASED UPPER AIRWAY SECRETION [None]
